FAERS Safety Report 5648853-3 (Version None)
Quarter: 2008Q1

REPORT INFORMATION
  Report Type: 
  Country: None (occurrence: None)
  Receive Date: 20080303
  Receipt Date: 20080303
  Transmission Date: 20080703
  Serious: Yes (Hospitalization)
  Sender: FDA-Public Use
  Company Number: None

PATIENT
  Age: 73 Year
  Sex: Male

DRUGS (2)
  1. ACETAZOLAMIDE [Suspect]
     Indication: GLAUCOMA
     Dosage: 250MG BID PO
     Route: 048
     Dates: start: 20071029, end: 20071105
  2. ACETAZOLAMIDE [Suspect]
     Indication: IRIS NEOVASCULARISATION
     Dosage: 250MG BID PO
     Route: 048
     Dates: start: 20071029, end: 20071105

REACTIONS (10)
  - ACIDOSIS [None]
  - AZOTAEMIA [None]
  - BLOOD CREATININE INCREASED [None]
  - BLOOD UREA INCREASED [None]
  - CONFUSIONAL STATE [None]
  - DEHYDRATION [None]
  - HYPERGLYCAEMIA [None]
  - MENTAL STATUS CHANGES [None]
  - RENAL TUBULAR ACIDOSIS [None]
  - ROAD TRAFFIC ACCIDENT [None]
